FAERS Safety Report 7406643-5 (Version None)
Quarter: 2011Q2

REPORT INFORMATION
  Report Type: 
  Country: None (occurrence: None)
  Receive Date: 20110411
  Receipt Date: 20110407
  Transmission Date: 20111010
  Serious: Yes (Hospitalization)
  Sender: FDA-Public Use
  Company Number: CA-BRISTOL-MYERS SQUIBB COMPANY-15646821

PATIENT
  Age: 40 Year
  Sex: Male

DRUGS (9)
  1. RANITIDINE [Concomitant]
     Dates: start: 20110322
  2. SENOKOT [Concomitant]
     Dates: start: 20110303
  3. IPILIMUMAB [Suspect]
     Indication: MALIGNANT MELANOMA
     Route: 042
     Dates: start: 20110211, end: 20110304
  4. PAMIDRONATE DISODIUM [Concomitant]
     Dates: start: 20110214
  5. ONDANSETRON [Concomitant]
     Dates: start: 20110322
  6. RABEPRAZOLE SODIUM [Concomitant]
     Dates: start: 20110303
  7. ADVIL LIQUI-GELS [Concomitant]
     Dates: start: 20110101
  8. MAXERAN [Concomitant]
     Dates: start: 20110301
  9. HYDROMORPHONE HCL [Concomitant]
     Dates: start: 20110303

REACTIONS (2)
  - VOMITING [None]
  - DIARRHOEA [None]
